FAERS Safety Report 6127024-0 (Version None)
Quarter: 2009Q1

REPORT INFORMATION
  Report Type: 
  Country: None (occurrence: None)
  Receive Date: 20090320
  Receipt Date: 20090311
  Transmission Date: 20090719
  Serious: Yes (Hospitalization)
  Sender: FDA-Public Use
  Company Number: PHHY2009DE08913

PATIENT
  Age: 44 Year
  Sex: Female

DRUGS (4)
  1. CARBAMAZEPINE [Suspect]
     Indication: AFFECTIVE DISORDER
     Dosage: 600 MG, UNK
  2. QUETIAPINE FUMARATE [Interacting]
     Indication: SCHIZOAFFECTIVE DISORDER
     Dosage: 700 MG/D
  3. RISPERIDONE [Concomitant]
     Indication: SCHIZOAFFECTIVE DISORDER
     Dosage: 8 MG,/ DAY
  4. ZOLPIDEM [Concomitant]
     Dosage: 10 MG, UNK

REACTIONS (7)
  - AGITATION [None]
  - ANTIPSYCHOTIC DRUG LEVEL BELOW THERAPEUTIC [None]
  - CONDITION AGGRAVATED [None]
  - DRUG INTERACTION [None]
  - FEELING ABNORMAL [None]
  - NERVOUSNESS [None]
  - PSYCHOTIC DISORDER [None]
